FAERS Safety Report 4911152-9 (Version None)
Quarter: 2006Q1

REPORT INFORMATION
  Report Type: 
  Country: None (occurrence: None)
  Receive Date: 20060209
  Receipt Date: 20060130
  Transmission Date: 20060701
  Serious: Yes (Hospitalization)
  Sender: FDA-Public Use
  Company Number: 2004086609

PATIENT
  Age: 64 Year
  Sex: Female
  Weight: 79 kg

DRUGS (12)
  1. SILDENAFIL CITRATE [Suspect]
     Indication: PULMONARY HYPERTENSION
     Dosage: 240 MG (80 MG, 3 IN 1 D), ORAL
     Route: 048
     Dates: start: 20040122
  2. DUOVENT (FENOTEROL HYDROBROMIDE, IPRATROPIUM BROMIDE) [Concomitant]
  3. SERETIDE (FLUTICASONE PROPIONATE, SALMETEROL XINAFOATE) [Concomitant]
  4. RANITIDINE HCL [Concomitant]
  5. LORAMET (LORMETAZEPAM) [Concomitant]
  6. LEVOTHYROXINE SODIUM [Concomitant]
  7. FENOFIBRATE [Concomitant]
  8. BUMETANIDE [Concomitant]
  9. MARCUMAR [Concomitant]
  10. CORDARONE [Concomitant]
  11. OXYGEN (OXYGEN) [Concomitant]
  12. CAPTOPRIL [Concomitant]

REACTIONS (7)
  - CHOLELITHIASIS [None]
  - DIARRHOEA [None]
  - GASTROINTESTINAL DISORDER [None]
  - HYPOTENSION [None]
  - PANCREAS LIPOMATOSIS [None]
  - PANCREATIC NEOPLASM [None]
  - PANCREATITIS ACUTE [None]
